FAERS Safety Report 5136384-9 (Version None)
Quarter: 2006Q4

REPORT INFORMATION
  Report Type: 
  Country: None (occurrence: None)
  Receive Date: 20061027
  Receipt Date: 20060927
  Transmission Date: 20070319
  Serious: Yes (Life-Threatening, Other)
  Sender: FDA-Public Use
  Company Number: JP-BRISTOL-MYERS SQUIBB COMPANY-13531504

PATIENT
  Age: 43 Year
  Sex: Female

DRUGS (9)
  1. ABILIFY [Suspect]
     Indication: SCHIZOPHRENIA
     Dosage: 13-JUN-06 DOSE 12MG, INCR TO 18MG ON 27-JUN-06, INCR TO 24MG ON 08-AUG-06, DECR TO 18MG ON 8-SEP-06
     Route: 048
     Dates: start: 20060613, end: 20060914
  2. CHLORPROMAZINE + PROMETHAZINE [Concomitant]
     Indication: INSOMNIA
     Route: 048
     Dates: end: 20060923
  3. PEROSPIRONE [Concomitant]
     Indication: PSYCHIATRIC SYMPTOM
     Dosage: START DOSE 24MG, FROM 8-9-06 TO 14-9-06 WITH SAME DOSE, RESTARTED ON 15-9-06 TO 23-9-06 48MG DOSE
     Route: 048
     Dates: start: 20060613, end: 20060626
  4. PEROSPIRONE [Concomitant]
     Route: 048
     Dates: start: 20060908, end: 20060914
  5. PEROSPIRONE [Concomitant]
     Route: 048
     Dates: start: 20060915, end: 20060923
  6. PEROSPIRONE [Concomitant]
     Route: 048
     Dates: start: 20061003
  7. CLOXAZOLAM [Concomitant]
     Indication: IRRITABILITY
     Route: 048
     Dates: end: 20060907
  8. NITRAZEPAM [Concomitant]
     Indication: INSOMNIA
     Route: 048
     Dates: end: 20060923
  9. SENNOSIDE [Concomitant]
     Indication: CONSTIPATION
     Route: 048
     Dates: end: 20060923

REACTIONS (3)
  - DEPRESSED LEVEL OF CONSCIOUSNESS [None]
  - NEUROLEPTIC MALIGNANT SYNDROME [None]
  - WATER INTOXICATION [None]
